FAERS Safety Report 19468360 (Version 1)
Quarter: 2021Q2

REPORT INFORMATION
  Report Type: Spontaneous
  Country: CA (occurrence: CA)
  Receive Date: 20210628
  Receipt Date: 20210628
  Transmission Date: 20210717
  Serious: Yes (Hospitalization)
  Sender: FDA-Public Use
  Company Number: CA-ROCHE-2855212

PATIENT
  Age: 70 Year
  Sex: Male

DRUGS (3)
  1. APOMORPHINE [Suspect]
     Active Substance: APOMORPHINE
     Indication: PARKINSON^S DISEASE
     Route: 030
  2. CLONAZEPAM. [Suspect]
     Active Substance: CLONAZEPAM
     Indication: PRODUCT USED FOR UNKNOWN INDICATION
     Route: 065
  3. MOVAPO [Suspect]
     Active Substance: APOMORPHINE HYDROCHLORIDE
     Indication: PARKINSON^S DISEASE
     Dosage: 30MG/3ML PREFILLED?PEN
     Route: 058

REACTIONS (14)
  - Balance disorder [Recovered/Resolved]
  - Confusional state [Recovered/Resolved]
  - Drug withdrawal syndrome [Recovered/Resolved]
  - Fall [Unknown]
  - Chest pain [Recovered/Resolved]
  - Mobility decreased [Recovered/Resolved]
  - Condition aggravated [Recovered/Resolved]
  - Salivary hypersecretion [Recovered/Resolved]
  - Irritability [Recovered/Resolved]
  - Psychotic behaviour [Recovered/Resolved]
  - Sleep disorder [Recovered/Resolved]
  - Dyspnoea [Recovered/Resolved]
  - Pain in extremity [Recovered/Resolved]
  - Cough [Recovered/Resolved]
